FAERS Safety Report 17489439 (Version 1)
Quarter: 2020Q1

REPORT INFORMATION
  Report Type: Spontaneous
  Country: FR (occurrence: FR)
  Receive Date: 20200303
  Receipt Date: 20200303
  Transmission Date: 20200409
  Serious: No
  Sender: FDA-Public Use
  Company Number: FR-TOLMAR, INC.-19FR019776

PATIENT
  Age: 30 Year
  Sex: Female

DRUGS (1)
  1. ELIGARD [Suspect]
     Active Substance: LEUPROLIDE ACETATE
     Indication: PRODUCT USED FOR UNKNOWN INDICATION
     Dosage: 45 MG
     Route: 065

REACTIONS (4)
  - Intercepted product preparation error [None]
  - Wrong technique in product usage process [None]
  - Product leakage [None]
  - Occupational exposure to product [Unknown]

NARRATIVE: CASE EVENT DATE: 20191214
